FAERS Safety Report 9858497 (Version 1)
Quarter: 2014Q1

REPORT INFORMATION
  Report Type: Spontaneous
  Country: US (occurrence: US)
  Receive Date: 20140131
  Receipt Date: 20140131
  Transmission Date: 20141002
  Serious: Yes (Hospitalization)
  Sender: FDA-Public Use
  Company Number: US-ABBVIE-14P-163-1193616-00

PATIENT
  Age: 38 Year
  Sex: Female

DRUGS (3)
  1. HUMIRA [Suspect]
     Indication: CROHN^S DISEASE
     Dates: start: 2012, end: 201309
  2. PRENATAL VITAMINS [Concomitant]
     Indication: PREGNANCY
     Dates: start: 201211
  3. B12 INJECTIONS [Concomitant]
     Indication: PRODUCT USED FOR UNKNOWN INDICATION
     Route: 050

REACTIONS (6)
  - Premature separation of placenta [Recovered/Resolved]
  - Drug ineffective [Not Recovered/Not Resolved]
  - Colitis [Unknown]
  - Dyspepsia [Unknown]
  - Placenta praevia [Recovered/Resolved]
  - Vasa praevia [Recovered/Resolved]
